FAERS Safety Report 6767875-2 (Version None)
Quarter: 2010Q2

REPORT INFORMATION
  Report Type: 
  Country: None (occurrence: None)
  Receive Date: 20100610
  Receipt Date: 20100528
  Transmission Date: 20101027
  Serious: Yes (Hospitalization)
  Sender: FDA-Public Use
  Company Number: 013258

PATIENT
  Sex: Female

DRUGS (16)
  1. CERTOLIZUMAB PEGOL (CERTOLIZUMAB PEFOL) [Suspect]
     Indication: RHEUMATOID ARTHRITIS
     Dosage: 200 MG 1X2 WEEKS SUBCUTANEOUS
     Route: 058
     Dates: start: 20091210
  2. PREDNISOLONE [Suspect]
     Indication: RHEUMATOID ARTHRITIS
     Dosage: 3.5 MG QD, ORAL
     Route: 048
     Dates: start: 20090418
  3. MOHRUS (MOHRUS) [Suspect]
     Indication: RHEUMATOID ARTHRITIS
     Dosage: TRANSDERMAL
     Route: 062
     Dates: start: 20090817
  4. ZALTOPROFEN (PELETON) [Suspect]
     Indication: RHEUMATOID ARTHRITIS
     Dosage: 240 MG ORAL
     Route: 048
     Dates: start: 20091112
  5. VOLTAREN [Suspect]
     Indication: RHEUMATOID ARTHRITIS
     Dosage: TRANSDERMAL
     Route: 062
     Dates: start: 20070416
  6. FAMOGAST (FAMOGAST) [Suspect]
     Indication: GASTRITIS PROPHYLAXIS
     Dosage: 20 MG ORAL
     Route: 048
  7. MYSLEE (MYSLEE) [Suspect]
     Indication: INSOMNIA
     Dosage: 10 MG ORAL
     Route: 048
  8. PLAVIX [Suspect]
     Dosage: 75 MG ORAL
     Route: 048
  9. ASPARTATE CALCIUM (ELSPRI) [Suspect]
     Indication: MINERAL SUPPLEMENTATION
     Dosage: 400 MG ORAL
     Route: 048
  10. CALFINA (FALFINA) (NOT SPECIFIED) [Suspect]
     Indication: OSTEOPOROSIS
     Dosage: 1 UG ORAL
     Route: 048
  11. BENET (BENET) (NOT SPECIFIED) [Suspect]
     Indication: OSTEOPOROSIS
     Dosage: 17.5 MG ORAL
     Route: 048
  12. RIBOFLAVIN TETRABUTYRATE (BI-LOVE) [Suspect]
     Indication: HYPERLIPIDAEMIA
     Dosage: 20 MG ORAL
     Route: 048
  13. MAIBASTAN (MAIBASTAN) (NOT SPECIFIED) [Suspect]
     Indication: HYPERLIPIDAEMIA
     Dosage: 10 MG ORAL
     Route: 048
  14. ALUMINIUM HYDROXIDE W/ MAGNESIUM HYDROXIDE [Suspect]
     Indication: GASTRITIS PROPHYLAXIS
     Dosage: 3.6 MG QD ORAL
  15. ISCOTIN /00030201/ (ISCOTIN) [Suspect]
     Indication: ANTIBIOTIC PROPHYLAXIS
     Dosage: 300 MG ORAL
     Route: 048
  16. EBASTEL (EBASTEL OD) (NOT SPECIFIED) [Suspect]
     Indication: EYELID PTOSIS
     Dosage: 10 MG ORAL
     Route: 048
     Dates: start: 20100527

REACTIONS (6)
  - EAR PAIN [None]
  - EYELID PTOSIS [None]
  - FACIAL PALSY [None]
  - HERPES ZOSTER OTICUS [None]
  - HYPERSENSITIVITY [None]
  - LACUNAR INFARCTION [None]
